FAERS Safety Report 7284130-5 (Version None)
Quarter: 2011Q1

REPORT INFORMATION
  Report Type: 
  Country: None (occurrence: None)
  Receive Date: 20110209
  Receipt Date: 20110131
  Transmission Date: 20110831
  Serious: Yes (Disabling, Other)
  Sender: FDA-Public Use
  Company Number: US-ELI_LILLY_AND_COMPANY-US201102000361

PATIENT
  Sex: Female

DRUGS (2)
  1. HUMALOG MIX 75/25 [Suspect]
     Indication: DIABETES MELLITUS
     Dosage: UNK, AS NEEDED
  2. BYETTA [Concomitant]
     Dosage: 5 UG, 2/D

REACTIONS (6)
  - BASEDOW'S DISEASE [None]
  - CHEMOTHERAPY [None]
  - CATARACT [None]
  - BLINDNESS [None]
  - CYSTOID MACULAR OEDEMA [None]
  - DIABETIC RETINOPATHY [None]
